FAERS Safety Report 7918720-0 (Version None)
Quarter: 2011Q4

REPORT INFORMATION
  Report Type: 
  Country: None (occurrence: None)
  Receive Date: 20111116
  Receipt Date: 20111025
  Transmission Date: 20120403
  Serious: Yes (Hospitalization)
  Sender: FDA-Public Use
  Company Number: DE-ROCHE-1010468

PATIENT
  Sex: Female
  Weight: 67 kg

DRUGS (8)
  1. XELODA [Suspect]
     Route: 048
     Dates: start: 20111018
  2. DOCETAXEL [Suspect]
     Indication: BREAST CANCER
     Dosage: SECOND CYCLE
     Route: 048
     Dates: start: 20110906
  3. DOCETAXEL [Suspect]
     Dosage: SECOND CYCLE
     Route: 048
     Dates: start: 20110927
  4. DOCETAXEL [Suspect]
     Dosage: THIRD CYCLE
     Route: 048
     Dates: start: 20111018
  5. METOCLOPRAMIDE [Concomitant]
  6. XELODA [Suspect]
     Route: 048
     Dates: start: 20110927
  7. NEUPOGEN [Concomitant]
     Indication: NEUTROPENIA
     Dates: start: 20111006, end: 20111006
  8. XELODA [Suspect]
     Indication: BREAST CANCER
     Dosage: LAST DOSE PRIOR TO SAE: 20 SEPTEMBER 2011
     Route: 048
     Dates: start: 20110906

REACTIONS (1)
  - WOUND COMPLICATION [None]
